FAERS Safety Report 4764725-0 (Version None)
Quarter: 2005Q3

REPORT INFORMATION
  Report Type: 
  Country: None (occurrence: None)
  Receive Date: 20050909
  Receipt Date: 20050826
  Transmission Date: 20060218
  Serious: Yes (Hospitalization)
  Sender: FDA-Public Use
  Company Number: FR-GILEAD-2005-0008658

PATIENT
  Age: 38 Year
  Sex: Male

DRUGS (4)
  1. EMTRIVA [Suspect]
     Dates: start: 20050531, end: 20050617
  2. VIREAD [Suspect]
     Indication: HIV INFECTION
     Route: 048
     Dates: start: 20050531, end: 20050617
  3. KALETRA [Suspect]
     Dates: start: 20050531, end: 20050617
  4. TEGRETOL [Suspect]
     Indication: HERPES ZOSTER
     Dates: start: 20050531, end: 20050617

REACTIONS (8)
  - BACTERIAL INFECTION [None]
  - CUTANEOUS VASCULITIS [None]
  - CYTOLYTIC HEPATITIS [None]
  - HYPOCALCAEMIA [None]
  - HYPONATRAEMIA [None]
  - ILEUS PARALYTIC [None]
  - THROMBOCYTOPENIA [None]
  - VASCULITIS GASTROINTESTINAL [None]
